FAERS Safety Report 15043836 (Version 1)
Quarter: 2018Q2

REPORT INFORMATION
  Report Type: Spontaneous
  Country: BR (occurrence: BR)
  Receive Date: 20180621
  Receipt Date: 20180621
  Transmission Date: 20180711
  Serious: Yes (Other)
  Sender: FDA-Public Use
  Company Number: BR-JNJFOC-20180621141

PATIENT
  Sex: Male

DRUGS (2)
  1. XARELTO [Suspect]
     Active Substance: RIVAROXABAN
     Indication: LIGAMENT OPERATION
     Route: 048
  2. XARELTO [Suspect]
     Active Substance: RIVAROXABAN
     Indication: LIGAMENT RUPTURE
     Route: 048

REACTIONS (4)
  - Joint swelling [Unknown]
  - Off label use [Unknown]
  - Product use in unapproved indication [Unknown]
  - Phlebitis [Unknown]
